FAERS Safety Report 10373768 (Version 1)
Quarter: 2014Q1

REPORT INFORMATION
  Report Type: Spontaneous
  Country: US (occurrence: None)
  Receive Date: 20140306
  Receipt Date: 20140306
  Transmission Date: 20141002
  Serious: Yes (Hospitalization)
  Sender: FDA-Public Use
  Company Number: 163-21880-13105315

PATIENT
  Age: 87 Year
  Sex: Male

DRUGS (4)
  1. REVLIMID (LENALIDOMIDE) (15 MILLIGRAM, CAPSULES) [Suspect]
     Indication: PLASMA CELL MYELOMA
     Dosage: 21 IN 21 D
     Route: 048
     Dates: start: 20110602
  2. HYDROCODONE/ ACETAMINOPHEN (REMEDEINE) [Concomitant]
  3. MULTIVITAMINS [Concomitant]
  4. AVODART (DUTASTERIDE) [Concomitant]

REACTIONS (1)
  - Pain in extremity [None]
